FAERS Safety Report 24308297 (Version 1)
Quarter: 2024Q3

REPORT INFORMATION
  Report Type: Spontaneous
  Country: US (occurrence: US)
  Receive Date: 20240911
  Receipt Date: 20240911
  Transmission Date: 20241017
  Serious: No
  Sender: SANDOZ
  Company Number: US-SANDOZ-SDZ2024US078565

PATIENT
  Sex: Female

DRUGS (1)
  1. BACITRACIN\NEOMYCIN\POLYMYXIN B [Suspect]
     Active Substance: BACITRACIN\NEOMYCIN\POLYMYXIN B
     Indication: Product used for unknown indication
     Dosage: UNK UNK, TID DROPS
     Route: 065

REACTIONS (2)
  - Insomnia [Unknown]
  - Application site pain [Unknown]
